FAERS Safety Report 4541895-0 (Version None)
Quarter: 2004Q4

REPORT INFORMATION
  Report Type: 
  Country: None (occurrence: None)
  Receive Date: 20041227
  Receipt Date: 20041216
  Transmission Date: 20050328
  Serious: Yes (Hospitalization)
  Sender: FDA-Public Use
  Company Number: 2004SE07059

PATIENT
  Age: 49 Year
  Sex: Female

DRUGS (5)
  1. CRESTOR [Suspect]
     Indication: HYPERCHOLESTEROLAEMIA
     Dosage: 10 MG DAILY PO
     Route: 048
     Dates: start: 20041120, end: 20041210
  2. LEUCOVORIN CALCIUM [Concomitant]
  3. FERRO-GRAD [Concomitant]
  4. EPARGRISEOVIT [Concomitant]
  5. ZOLOFT [Concomitant]

REACTIONS (3)
  - ACNE [None]
  - RASH PAPULAR [None]
  - RASH SCALY [None]
